FAERS Safety Report 15975901 (Version 2)
Quarter: 2019Q1

REPORT INFORMATION
  Report Type: Spontaneous
  Country: GR (occurrence: GR)
  Receive Date: 20190218
  Receipt Date: 20190218
  Transmission Date: 20190418
  Serious: Yes (Other)
  Sender: FDA-Public Use
  Company Number: PHHY2019GR033997

PATIENT
  Age: 55 Year
  Sex: Female

DRUGS (3)
  1. CICLOSPORIN [Suspect]
     Active Substance: CYCLOSPORINE
     Indication: FELTY^S SYNDROME
     Dosage: 100 MG, UNK
     Route: 065
  2. METHYLPREDNISOLONE. [Concomitant]
     Active Substance: METHYLPREDNISOLONE
     Indication: PLATELET COUNT DECREASED
     Dosage: 32 MG, (1 GM, IV; 32 MG/DAY WITH GRADUAL REDUCTION)
     Route: 065
  3. FILGRASTIM [Suspect]
     Active Substance: FILGRASTIM
     Indication: NEUTROPENIA
     Dosage: UNK
     Route: 065

REACTIONS (6)
  - Off label use [Unknown]
  - Felty^s syndrome [Unknown]
  - Platelet count decreased [Unknown]
  - Polycythaemia [Recovered/Resolved]
  - Portal hypertension [Unknown]
  - Goitre [Unknown]
